FAERS Safety Report 4371160-6 (Version None)
Quarter: 2004Q2

REPORT INFORMATION
  Report Type: 
  Country: None (occurrence: None)
  Receive Date: 20040601
  Receipt Date: 20040520
  Transmission Date: 20050107
  Serious: Yes (Hospitalization, Other)
  Sender: FDA-Public Use
  Company Number: US-JNJFOC-20040404789

PATIENT
  Age: 34 Year
  Sex: Female
  Weight: 80.7403 kg

DRUGS (9)
  1. REMICADE [Suspect]
     Indication: CROHN'S DISEASE
     Dosage: INTRAVENOUS EVERY 8 WEEKS
     Route: 042
     Dates: start: 20030424
  2. REMICADE [Suspect]
     Indication: CROHN'S DISEASE
     Dosage: INTRAVENOUS EVERY 8 WEEKS
     Route: 042
     Dates: start: 20040325
  3. REMICADE [Suspect]
     Indication: CROHN'S DISEASE
     Dosage: INTRAVENOUS EVERY 8 WEEKS
     Route: 042
     Dates: start: 20040518
  4. CELEBREX (CELEBREX) [Concomitant]
  5. PRENATAL (VITAMINS) (PRENATAL VITAMINS [Concomitant]
  6. LOMOTIL [Concomitant]
  7. IMODIUM [Concomitant]
  8. PENTASA [Concomitant]
  9. NEURONTIN [Concomitant]

REACTIONS (10)
  - ASTHENIA [None]
  - BURNING SENSATION [None]
  - GASTROINTESTINAL INFECTION [None]
  - HYPOAESTHESIA [None]
  - MIGRAINE [None]
  - PAIN IN EXTREMITY [None]
  - PREGNANCY [None]
  - PRURITUS GENERALISED [None]
  - VIRAL INFECTION [None]
  - VISUAL DISTURBANCE [None]
